FAERS Safety Report 10246981 (Version 1)
Quarter: 2014Q1

REPORT INFORMATION
  Report Type: Spontaneous
  Country: US (occurrence: None)
  Receive Date: 20140306
  Receipt Date: 20140306
  Transmission Date: 20141002
  Serious: Yes (Hospitalization)
  Sender: FDA-Public Use
  Company Number: 163-21880-13043160

PATIENT
  Age: 74 Year
  Sex: Male
  Weight: 84 kg

DRUGS (17)
  1. REVLIMID (LENALIDOMIDE) (25 MILLIGRAM, CAPSULES) [Suspect]
     Indication: PLASMA CELL MYELOMA
     Dosage: 25 MG, 21 IN 28 D, PO
     Route: 048
     Dates: start: 20120514, end: 20130416
  2. MORPHINE (MORPHINE) [Concomitant]
  3. DEXAMETHASONE (DEXAMETHASONE) [Concomitant]
  4. VITAMIN B12 (CYANOCOBALALMIN) (INJECTION) [Concomitant]
  5. CITALOPRAM (CITALOPRAM) [Concomitant]
  6. SIMVASTATIN (SIMVASTATIN) [Concomitant]
  7. LEVOTHYROXINE (LEVOTHYROXINE) [Concomitant]
  8. LISINOPRIL (LISINOPRIL) [Concomitant]
  9. HYDROCODONE (HYDROCODONE) [Concomitant]
  10. PILOCARPINE (PILOCARPINE) [Concomitant]
  11. ZOFRAN (ONDANSETRON HYDROCHLORIDE) [Concomitant]
  12. DILAUDID (HYDROMORPHONE HYDROCHLORIDE) [Concomitant]
  13. AMLODIPINE (AMLODIPINE) [Concomitant]
  14. ASPIRIN (ACETYLSALICYLIC ACID) [Concomitant]
  15. AMITRIPTYLINE (AMITRIPTYLINE) [Concomitant]
  16. PREDNISONE (PREDNISONE) [Concomitant]
  17. ZOMETA (ZOLEDRONIC ACID) [Concomitant]

REACTIONS (1)
  - Sepsis syndrome [None]
